FAERS Safety Report 13201822 (Version 1)
Quarter: 2017Q1

REPORT INFORMATION
  Report Type: Spontaneous
  Country: BR (occurrence: BR)
  Receive Date: 20170209
  Receipt Date: 20170209
  Transmission Date: 20170428
  Serious: Yes (Other)
  Sender: FDA-Public Use
  Company Number: US-ASTRAZENECA-2017SE14261

PATIENT
  Age: 67 Year
  Sex: Female

DRUGS (8)
  1. DAXAS [Suspect]
     Active Substance: ROFLUMILAST
     Indication: CHRONIC OBSTRUCTIVE PULMONARY DISEASE
     Dosage: UNK
     Route: 048
     Dates: start: 2013
  2. SPIRIVA [Concomitant]
     Active Substance: TIOTROPIUM BROMIDE MONOHYDRATE
     Dosage: UNK, EVERY DAY
  3. AIRES [Concomitant]
     Active Substance: ACETYLCYSTEINE
     Dosage: UNK, EVERY DAY
  4. SERETIDE [Concomitant]
     Active Substance: FLUTICASONE PROPIONATE\SALMETEROL XINAFOATE
     Dosage: UNK, TWO TIMES A DAY
  5. DEFLAIMMUN [Concomitant]
     Active Substance: DEFLAZACORT
     Dosage: UNK, EVERY DAY
  6. BAMIFIX [Concomitant]
     Active Substance: BAMIFYLLINE HYDROCHLORIDE
     Dosage: UNK, TWO TIMES A DAY
  7. SERTRALINE [Concomitant]
     Active Substance: SERTRALINE HYDROCHLORIDE
     Dosage: UNK, EVERY DAY
  8. BACTERIAL LYSATE [Concomitant]
     Active Substance: UNSPECIFIED INGREDIENT
     Dosage: UNK, EVERY DAY

REACTIONS (2)
  - Lung disorder [Unknown]
  - Cardiac disorder [Unknown]
